FAERS Safety Report 8841370 (Version 1)
Quarter: 2012Q4

REPORT INFORMATION
  Report Type: 
  Country: US (occurrence: US)
  Receive Date: 20121015
  Receipt Date: 20121015
  Transmission Date: 20130627
  Serious: No
  Sender: FDA-Public Use
  Company Number: US-BAYER-2012-104968

PATIENT
  Sex: Male

DRUGS (1)
  1. ALEVE GELCAP [Suspect]

REACTIONS (2)
  - Urticaria [Recovered/Resolved]
  - Urticaria [None]
